FAERS Safety Report 15119650 (Version 1)
Quarter: 2018Q3

REPORT INFORMATION
  Report Type: Spontaneous
  Country: JP (occurrence: JP)
  Receive Date: 20180709
  Receipt Date: 20180709
  Transmission Date: 20181010
  Serious: Yes (Other)
  Sender: FDA-Public Use
  Company Number: JP-ROCHE-2132517

PATIENT
  Age: 6 Year
  Sex: Male
  Weight: 14 kg

DRUGS (6)
  1. BRUFEN [Concomitant]
     Active Substance: IBUPROFEN
     Dosage: DOSAGE IS UNCERTAIN.
     Route: 048
     Dates: start: 20130619
  2. ACTEMRA [Suspect]
     Active Substance: TOCILIZUMAB
     Indication: STILL^S DISEASE
     Dosage: DOSAGE IS UNCERTAIN.
     Route: 041
     Dates: start: 20161128
  3. PREDNISOLONE. [Concomitant]
     Active Substance: PREDNISOLONE
     Dosage: DOSAGE IS UNCERTAIN.
     Route: 048
     Dates: start: 20130617
  4. METHOTREXATE. [Concomitant]
     Active Substance: METHOTREXATE
     Dosage: DOSAGE IS UNCERTAIN.
     Route: 065
     Dates: start: 20130617
  5. ALFAROL [Concomitant]
     Active Substance: ALFACALCIDOL
     Dosage: DOSAGE IS UNCERTAIN.
     Route: 048
     Dates: start: 20140414
  6. BAKTAR [Concomitant]
     Active Substance: SULFAMETHOXAZOLE\TRIMETHOPRIM
     Dosage: DOSAGE IS UNCERTAIN.
     Route: 048
     Dates: start: 20160708

REACTIONS (3)
  - Drug ineffective [Unknown]
  - Dislocation of vertebra [Not Recovered/Not Resolved]
  - Arthritis [Not Recovered/Not Resolved]

NARRATIVE: CASE EVENT DATE: 20171226
